FAERS Safety Report 6085261-8 (Version None)
Quarter: 2009Q1

REPORT INFORMATION
  Report Type: 
  Country: None (occurrence: None)
  Receive Date: 20090220
  Receipt Date: 20090218
  Transmission Date: 20090719
  Serious: Yes (Other)
  Sender: FDA-Public Use
  Company Number: DE-JNJFOC-20090204345

PATIENT
  Age: 85 Year
  Sex: Female

DRUGS (5)
  1. REOPRO [Suspect]
     Route: 042
  2. REOPRO [Suspect]
     Indication: MYOCARDIAL INFARCTION
     Route: 042
  3. HEPARIN [Concomitant]
  4. HEPARIN [Concomitant]
     Indication: MYOCARDIAL INFARCTION
  5. CLOPIDOGREL [Concomitant]
     Indication: MYOCARDIAL INFARCTION

REACTIONS (1)
  - SHOCK HAEMORRHAGIC [None]
